FAERS Safety Report 11507236 (Version 1)
Quarter: 2015Q3

REPORT INFORMATION
  Report Type: Spontaneous
  Country: US (occurrence: None)
  Receive Date: 20150914
  Receipt Date: 20150914
  Transmission Date: 20151125
  Serious: Yes (Other)
  Sender: FDA-Public Use
  Company Number: None

PATIENT
  Age: 69 Year
  Sex: Female
  Weight: 62.6 kg

DRUGS (10)
  1. METFORMIN [Concomitant]
     Active Substance: METFORMIN HYDROCHLORIDE
  2. VITAMIN C [Concomitant]
     Active Substance: ASCORBIC ACID
  3. VITAMIN D3 [Concomitant]
     Active Substance: CHOLECALCIFEROL
  4. KLONOPIN [Concomitant]
     Active Substance: CLONAZEPAM
  5. SIMVASTATIN. [Concomitant]
     Active Substance: SIMVASTATIN
  6. CELEXA [Concomitant]
     Active Substance: CITALOPRAM HYDROBROMIDE
  7. CALCIUM [Concomitant]
     Active Substance: CALCIUM
  8. LISINOPRIL. [Suspect]
     Active Substance: LISINOPRIL
     Indication: DIABETES MELLITUS
     Dosage: 1 PILL AT BEDTIME ONCE DAILY --
  9. SUDAFED [Concomitant]
     Active Substance: PSEUDOEPHEDRINE HYDROCHLORIDE
  10. BUSPIRONE [Concomitant]
     Active Substance: BUSPIRONE HYDROCHLORIDE

REACTIONS (8)
  - Dyspnoea [None]
  - Choking [None]
  - No therapeutic response [None]
  - Palpitations [None]
  - Chromaturia [None]
  - Cough [None]
  - Vomiting [None]
  - Muscle spasms [None]
